FAERS Safety Report 7947506-6 (Version None)
Quarter: 2011Q4

REPORT INFORMATION
  Report Type: 
  Country: None (occurrence: None)
  Receive Date: 20111130
  Receipt Date: 20111125
  Transmission Date: 20120403
  Serious: Yes (Other)
  Sender: FDA-Public Use
  Company Number: IN-ACCORD-011461

PATIENT
  Age: 45 Year
  Sex: Male

DRUGS (5)
  1. TACROLIMUS [Suspect]
     Indication: RENAL TRANSPLANT
  2. METHYLPREDNISOLONE [Concomitant]
     Indication: RENAL TRANSPLANT
     Dosage: AS INDUCTION
  3. MYCOPHENOLATE MOFETIL [Concomitant]
     Indication: RENAL TRANSPLANT
  4. PREDNISOLONE [Concomitant]
     Indication: RENAL TRANSPLANT
     Dosage: AS MAINTENANCE
  5. ANTITHYMOCYTE IMMUNOGLOBULIN (RABBI [Concomitant]
     Indication: RENAL TRANSPLANT

REACTIONS (4)
  - BLOOD POTASSIUM INCREASED [None]
  - BLOOD MAGNESIUM DECREASED [None]
  - TETANY [None]
  - BLOOD CREATININE INCREASED [None]
